FAERS Safety Report 10194725 (Version 2)
Quarter: 2014Q2

REPORT INFORMATION
  Report Type: Report from Study
  Country: US (occurrence: US)
  Receive Date: 20140526
  Receipt Date: 20140609
  Transmission Date: 20141212
  Serious: Yes (Hospitalization)
  Sender: FDA-Public Use
  Company Number: US-BRISTOL-MYERS SQUIBB COMPANY-20782660

PATIENT
  Age: 29 Year
  Sex: Male
  Weight: 58.6 kg

DRUGS (3)
  1. PRAVASTATIN SODIUM [Suspect]
     Indication: ACUTE MYELOID LEUKAEMIA
     Dosage: PRAVASTATIN P01280MG/DAY DAYS 1 THROUGH 8
     Route: 048
     Dates: start: 20140502, end: 20140509
  2. CYTARABINE [Suspect]
     Indication: ACUTE MYELOID LEUKAEMIA
     Dosage: INTRAVENOUS CYTARABINE AT A DOSE OF 1500 MG/M2 CONTINUOUS OVER 24 HOURS ON DAYS 4 TO 7
     Dates: start: 20140502
  3. IDARUBICIN [Suspect]
     Indication: ACUTE MYELOID LEUKAEMIA
     Dosage: INTRAVENOUS IDARUBICIN AT A DOSE OF 12 MG/M2 DAILY ON DAYS 4 TO 6
     Dates: start: 20140502

REACTIONS (1)
  - Sepsis [Recovering/Resolving]
